FAERS Safety Report 14842899 (Version 6)
Quarter: 2018Q2

REPORT INFORMATION
  Report Type: Spontaneous
  Country: CA (occurrence: CA)
  Receive Date: 20180503
  Receipt Date: 20180523
  Transmission Date: 20180711
  Serious: Yes (Hospitalization, Other)
  Sender: FDA-Public Use
  Company Number: CA-PFIZER INC-2017087941

PATIENT
  Age: 72 Year
  Sex: Female
  Weight: 68 kg

DRUGS (17)
  1. INFLECTRA [Suspect]
     Active Substance: INFLIXIMAB-DYYB
     Indication: RHEUMATOID ARTHRITIS
     Dosage: 200 MG, CYCLIC (EVERY 8 WEEKS FOR 12 MONTHS)
     Route: 042
     Dates: start: 20160728, end: 20170621
  2. VOLTAREN [Concomitant]
     Active Substance: DICLOFENAC SODIUM
     Dosage: UNK
  3. FLUCONAZOLE. [Concomitant]
     Active Substance: FLUCONAZOLE
     Dosage: 150 MG, 1X/DAY FOR 7 DAYS UNTIL FINISHED
     Route: 048
  4. INFLECTRA [Suspect]
     Active Substance: INFLIXIMAB-DYYB
     Dosage: 350 MG, CYCLIC (EVERY 4 WEEKS)
     Route: 042
     Dates: start: 20180215
  5. LOSEC [Concomitant]
     Active Substance: OMEPRAZOLE
     Dosage: 20 MG, UNSPECIFIED FREQUENCY
  6. METHOTREXATE SODIUM. [Suspect]
     Active Substance: METHOTREXATE SODIUM
     Dosage: 0.7 MG, UNK
  7. INFLECTRA [Suspect]
     Active Substance: INFLIXIMAB-DYYB
     Dosage: 350 MG, CYCLIC (EVERY 4 WEEKS)
     Route: 042
     Dates: start: 20180214
  8. B 50 COMPLEX WITH C [Concomitant]
     Dosage: UNK
  9. ZOPLICONE [Concomitant]
     Active Substance: ZOPICLONE
     Dosage: 7.5 MG, 1X/DAY AT BEDTIME
  10. PLAQUENIL [Concomitant]
     Active Substance: HYDROXYCHLOROQUINE SULFATE
     Dosage: 200 MG, 2X/DAY
  11. BACLOFEN. [Concomitant]
     Active Substance: BACLOFEN
     Dosage: 10 MG, UNKNOWN FREQUENCY
  12. PREDNISONE. [Concomitant]
     Active Substance: PREDNISONE
     Dosage: 10 MG, 1X/DAY
     Route: 048
  13. INFLECTRA [Suspect]
     Active Substance: INFLIXIMAB-DYYB
     Dosage: 200 MG, CYCLIC (EVERY 6 WEEKS)
     Route: 042
     Dates: start: 20170801, end: 20180110
  14. FOLIC ACID. [Concomitant]
     Active Substance: FOLIC ACID
     Dosage: 5 MG, 1X/DAY
  15. TYLENOL [Concomitant]
     Active Substance: ACETAMINOPHEN
     Dosage: 500 MG, AS NEEDED
  16. INFLECTRA [Suspect]
     Active Substance: INFLIXIMAB-DYYB
     Dosage: 350 MG, CYCLIC (EVERY 4 WEEKS)
     Route: 042
     Dates: start: 20180314, end: 20180314
  17. PREDNISONE. [Concomitant]
     Active Substance: PREDNISONE
     Dosage: 10 MG, 2X/DAY
     Route: 048

REACTIONS (41)
  - Drug hypersensitivity [Recovering/Resolving]
  - Dizziness [Unknown]
  - Ear pruritus [Unknown]
  - Asthenia [Not Recovered/Not Resolved]
  - Eosinophilia [Unknown]
  - Condition aggravated [Unknown]
  - Nasopharyngitis [Not Recovered/Not Resolved]
  - Blood sodium decreased [Not Recovered/Not Resolved]
  - Urticaria [Unknown]
  - Candida infection [Recovering/Resolving]
  - Musculoskeletal stiffness [Unknown]
  - Foot deformity [Unknown]
  - Pharyngeal oedema [Not Recovered/Not Resolved]
  - Swelling [Not Recovered/Not Resolved]
  - Hypersensitivity [Recovering/Resolving]
  - Pruritus [Unknown]
  - Contusion [Not Recovered/Not Resolved]
  - Choking [Unknown]
  - Musculoskeletal stiffness [Unknown]
  - Symptom recurrence [Unknown]
  - Lymphadenopathy [Not Recovered/Not Resolved]
  - Cushing^s syndrome [Unknown]
  - Pain [Not Recovered/Not Resolved]
  - Viral upper respiratory tract infection [Recovering/Resolving]
  - Flat affect [Unknown]
  - Dysphagia [Recovered/Resolved]
  - Swelling face [Not Recovered/Not Resolved]
  - White blood cell count decreased [Not Recovered/Not Resolved]
  - Tremor [Not Recovered/Not Resolved]
  - Lower respiratory tract infection [Unknown]
  - Productive cough [Not Recovered/Not Resolved]
  - Product use issue [Unknown]
  - Chills [Not Recovered/Not Resolved]
  - Nausea [Unknown]
  - Dyspnoea [Not Recovered/Not Resolved]
  - Drug ineffective [Recovered/Resolved]
  - Joint swelling [Not Recovered/Not Resolved]
  - Fatigue [Not Recovered/Not Resolved]
  - Condition aggravated [Not Recovered/Not Resolved]
  - Malaise [Unknown]
  - Insomnia [Unknown]

NARRATIVE: CASE EVENT DATE: 201704
